FAERS Safety Report 12452291 (Version 1)
Quarter: 2016Q2

REPORT INFORMATION
  Report Type: Spontaneous
  Country: US (occurrence: US)
  Receive Date: 20160609
  Receipt Date: 20160609
  Transmission Date: 20160815
  Serious: Yes (Hospitalization)
  Sender: FDA-Public Use
  Company Number: US-ASTELLAS-2015US029939

PATIENT
  Age: 56 Year
  Sex: Female

DRUGS (5)
  1. PREDNISONE. [Concomitant]
     Active Substance: PREDNISONE
     Indication: PRODUCT USED FOR UNKNOWN INDICATION
     Route: 065
  2. PROGRAF [Suspect]
     Active Substance: TACROLIMUS\TACROLIMUS ANHYDROUS
     Indication: RENAL TRANSPLANT
     Dosage: 2 CAPSULES, TWICE DAILY
     Route: 048
     Dates: start: 20130121
  3. MYCOPHENOLATE MOFETIL. [Concomitant]
     Active Substance: MYCOPHENOLATE MOFETIL
     Indication: PRODUCT USED FOR UNKNOWN INDICATION
     Route: 065
  4. PROGRAF [Suspect]
     Active Substance: TACROLIMUS\TACROLIMUS ANHYDROUS
     Dosage: 1MG IN MORNING, 2MG IN THE EVENING
     Route: 065
     Dates: start: 20150922
  5. ENBREL [Concomitant]
     Active Substance: ETANERCEPT
     Indication: RHEUMATOID ARTHRITIS
     Dosage: UNK UNK, EVERY 2 WEEKS
     Route: 065

REACTIONS (10)
  - Malnutrition [Unknown]
  - Anaemia [Recovering/Resolving]
  - Thrombocytopenia [Recovering/Resolving]
  - Upper respiratory tract infection [Unknown]
  - Oral herpes [Unknown]
  - Herpes simplex pharyngitis [Unknown]
  - Hypokalaemia [Unknown]
  - Nodule [Unknown]
  - Vocal cord cyst [Unknown]
  - Transplant dysfunction [Unknown]

NARRATIVE: CASE EVENT DATE: 201508
